FAERS Safety Report 18958114 (Version 2)
Quarter: 2021Q1

REPORT INFORMATION
  Report Type: Spontaneous
  Country: JP (occurrence: JP)
  Receive Date: 20210302
  Receipt Date: 20210324
  Transmission Date: 20210420
  Serious: No
  Sender: FDA-Public Use
  Company Number: JP-GLAXOSMITHKLINE-JP2021052435

PATIENT
  Age: 9 Decade
  Sex: Male

DRUGS (1)
  1. SAMTIREL [Suspect]
     Active Substance: ATOVAQUONE
     Indication: ANTIFUNGAL PROPHYLAXIS
     Dosage: UNK
     Route: 048

REACTIONS (1)
  - Chest X-ray abnormal [Unknown]
